FAERS Safety Report 5048210-7 (Version None)
Quarter: 2006Q2

REPORT INFORMATION
  Report Type: 
  Country: None (occurrence: None)
  Receive Date: 20060601
  Receipt Date: 20060320
  Transmission Date: 20061013
  Serious: No
  Sender: FDA-Public Use
  Company Number: 2006PV010589

PATIENT
  Age: 77 Year
  Sex: Female
  Weight: 133.3575 kg

DRUGS (1)
  1. BYETTA [Suspect]
     Indication: DIABETES MELLITUS NON-INSULIN-DEPENDENT
     Dosage: 5 MCG;BID;SC
     Route: 058
     Dates: start: 20060316

REACTIONS (3)
  - DIZZINESS [None]
  - FEELING ABNORMAL [None]
  - MALAISE [None]
